FAERS Safety Report 17733774 (Version 1)
Quarter: 2020Q2

REPORT INFORMATION
  Report Type: Spontaneous
  Country: US (occurrence: US)
  Receive Date: 20200430
  Receipt Date: 20200430
  Transmission Date: 20200714
  Serious: Yes (Hospitalization)
  Sender: FDA-Public Use
  Company Number: None

PATIENT
  Age: 50 Year
  Sex: Female

DRUGS (7)
  1. ASPIRIN. [Concomitant]
     Active Substance: ASPIRIN
  2. REXULTI [Concomitant]
     Active Substance: BREXPIPRAZOLE
  3. REPATHA [Suspect]
     Active Substance: EVOLOCUMAB
     Dosage: ?          OTHER FREQUENCY:Q14D;?
     Route: 058
     Dates: start: 20191121
  4. CLONAZEPAM. [Concomitant]
     Active Substance: CLONAZEPAM
  5. NITROGLYCER [Concomitant]
  6. METOPROL SUC [Concomitant]
  7. LAMOTRIGINE. [Concomitant]
     Active Substance: LAMOTRIGINE

REACTIONS (2)
  - Headache [None]
  - Hysterectomy [None]

NARRATIVE: CASE EVENT DATE: 20200423
